FAERS Safety Report 10377681 (Version 1)
Quarter: 2014Q1

REPORT INFORMATION
  Report Type: Spontaneous
  Country: US (occurrence: None)
  Receive Date: 20140306
  Receipt Date: 20140306
  Transmission Date: 20141002
  Serious: Yes (Other)
  Sender: FDA-Public Use
  Company Number: 163-21880-13031833

PATIENT
  Age: 73 Year
  Sex: Female
  Weight: 47.63 kg

DRUGS (11)
  1. REVLIMID (LENALIDOMIDE) (5 MILLIGRAM, CAPSULES) [Suspect]
     Indication: MYELODYSPLASTIC SYNDROME
     Route: 048
     Dates: start: 201106, end: 2012
  2. ATENOLOL (ATENOLOL) (UNKNOWN) [Concomitant]
  3. RALOXIFENE (RALOXIFENE) (UNKNOWN) [Concomitant]
  4. FLUTICASONE (FLUTICASONE) (NASAL DROPS (INCLUDING NASAL SPRAY)) [Concomitant]
  5. FOLIC ACID (FOLIC ACID) (UNKNOWN) [Concomitant]
  6. POTASSIUM CHLORIDE (POTASSIUM CHLORIDE) (UNKNOWN) [Concomitant]
  7. LEVOTHYROXINE (LEVOTHYROXINE) (UNKNOWN) [Concomitant]
  8. LORAZEPAM (LORAZEPAM) (UNKNOWN) [Concomitant]
  9. NYSTATIN (NYSTATIN) (UNKNOWN) [Concomitant]
  10. PROCHLORPERAZINE (PROCHLORPERAZINE) (UNKNOWN) [Concomitant]
  11. SIMVASTATIN (SIMVASTATIN) (UNKNOWN) [Concomitant]

REACTIONS (2)
  - Acute myeloid leukaemia [None]
  - Myelodysplastic syndrome transformation [None]
